FAERS Safety Report 14305318 (Version 1)
Quarter: 2017Q4

REPORT INFORMATION
  Report Type: Report from Study
  Country: JP (occurrence: JP)
  Receive Date: 20171219
  Receipt Date: 20171219
  Transmission Date: 20180321
  Serious: Yes (Other)
  Sender: FDA-Public Use
  Company Number: JP-OTSUKA-001934

PATIENT
  Age: 37 Year
  Sex: Male
  Weight: 70 kg

DRUGS (18)
  1. LENDORMIN DAINIPPO [Concomitant]
     Active Substance: BROTIZOLAM
     Indication: INSOMNIA
     Dosage: 0.25 MG, DAILY DOSE
     Route: 048
     Dates: start: 20080616, end: 20080625
  2. ARIPIPRAZOLE. [Suspect]
     Active Substance: ARIPIPRAZOLE
     Dosage: 12 MG, QD
     Route: 048
     Dates: start: 20080618, end: 20080624
  3. ARIPIPRAZOLE. [Suspect]
     Active Substance: ARIPIPRAZOLE
     Dosage: 24 MG, QD
     Route: 048
     Dates: start: 20080626, end: 20080626
  4. EURODIN [Concomitant]
     Dosage: 2 MG, QD
     Route: 048
     Dates: start: 20080629
  5. MYSLEE [Concomitant]
     Active Substance: ZOLPIDEM TARTRATE
     Indication: INSOMNIA
     Dosage: 5 MG, DAILY DOSE
     Route: 048
     Dates: start: 20080616, end: 20080625
  6. ZOLPIDEM [Concomitant]
     Active Substance: ZOLPIDEM\ZOLPIDEM TARTRATE
     Indication: PRODUCT USED FOR UNKNOWN INDICATION
     Dosage: FORM - TABLET
     Route: 065
     Dates: start: 20080616, end: 20080625
  7. ARIPIPRAZOLE. [Suspect]
     Active Substance: ARIPIPRAZOLE
     Dosage: 12 MG, QD
     Route: 048
     Dates: start: 20080630, end: 20080630
  8. SENNA [Concomitant]
     Active Substance: SENNA LEAF\SENNOSIDES\SENNOSIDES A AND B
     Indication: PRODUCT USED FOR UNKNOWN INDICATION
     Dosage: FORM - TABLET
     Route: 065
     Dates: start: 20080623, end: 20080624
  9. ARIPIPRAZOLE. [Suspect]
     Active Substance: ARIPIPRAZOLE
     Indication: SCHIZOPHRENIA
     Dosage: 6 MG, QD
     Route: 048
     Dates: start: 20080617, end: 20080617
  10. ARIPIPRAZOLE. [Suspect]
     Active Substance: ARIPIPRAZOLE
     Dosage: 18 MG, QD
     Route: 048
     Dates: start: 20080625, end: 20080625
  11. ARIPIPRAZOLE. [Suspect]
     Active Substance: ARIPIPRAZOLE
     Dosage: 30 MG, QD
     Route: 048
     Dates: start: 20080627, end: 20080629
  12. WYPAX [Concomitant]
     Active Substance: LORAZEPAM
     Indication: PRODUCT USED FOR UNKNOWN INDICATION
     Dosage: 2 MG, QD
     Route: 048
     Dates: start: 20080616, end: 20080617
  13. WYPAX [Concomitant]
     Active Substance: LORAZEPAM
     Dosage: FORM - TABLET
     Route: 065
     Dates: start: 20080616
  14. EURODIN [Concomitant]
     Indication: PRODUCT USED FOR UNKNOWN INDICATION
     Dosage: 2 MG, QD
     Route: 048
     Dates: start: 20080616, end: 20080627
  15. PURSENNID [Concomitant]
     Active Substance: SENNOSIDES A AND B
     Indication: CONSTIPATION
     Dosage: 24 MG, DAILY DOSE
     Route: 048
     Dates: start: 20080623, end: 20080624
  16. WYPAX [Concomitant]
     Active Substance: LORAZEPAM
     Dosage: 4 MG, QD
     Route: 048
     Dates: start: 20080618, end: 20080626
  17. WYPAX [Concomitant]
     Active Substance: LORAZEPAM
     Dosage: 8 MG, QD
     Route: 048
     Dates: start: 20080627
  18. HORIZON [Concomitant]
     Active Substance: DIAZEPAM
     Indication: IRRITABILITY
     Dosage: 5 MG, DAILY DOSE
     Route: 048
     Dates: start: 20080616, end: 20080625

REACTIONS (3)
  - Dizziness [Not Recovered/Not Resolved]
  - Psychiatric symptom [Recovered/Resolved]
  - Somnolence [Not Recovered/Not Resolved]

NARRATIVE: CASE EVENT DATE: 20080627
